FAERS Safety Report 17142409 (Version 1)
Quarter: 2019Q4

REPORT INFORMATION
  Report Type: Spontaneous
  Country: BY (occurrence: BY)
  Receive Date: 20191211
  Receipt Date: 20191211
  Transmission Date: 20200122
  Serious: Yes (Death, Life-Threatening, Hospitalization)
  Sender: FDA-Public Use
  Company Number: BY-JNJFOC-20191205757

PATIENT
  Age: 43 Year
  Sex: Male
  Weight: 71 kg

DRUGS (17)
  1. IMIPENEM AND CILASTATIN [Suspect]
     Active Substance: CILASTATIN SODIUM\IMIPENEM
     Indication: TUBERCULOSIS
     Route: 042
     Dates: start: 20180814, end: 20190129
  2. DIAFER                             /00082702/ [Concomitant]
     Route: 048
     Dates: start: 20180821, end: 20190129
  3. KETOTIFEN [Concomitant]
     Active Substance: KETOTIFEN
     Route: 048
     Dates: start: 20180814, end: 20190129
  4. DELAMANID [Suspect]
     Active Substance: DELAMANID
     Indication: TUBERCULOSIS
     Route: 048
     Dates: start: 20180814, end: 20190129
  5. CLOFAZIMINE [Suspect]
     Active Substance: CLOFAZIMINE
     Indication: TUBERCULOSIS
     Route: 048
     Dates: start: 20180814, end: 20190129
  6. AMOXICILLIN W/CLAVULANIC ACID [Suspect]
     Active Substance: AMOXICILLIN\CLAVULANIC ACID
     Indication: TUBERCULOSIS
     Route: 048
     Dates: start: 20180814, end: 20190129
  7. ESSENTICAPSUM [Concomitant]
     Route: 048
     Dates: start: 20180814, end: 20190129
  8. ZIDOVUDINE. [Concomitant]
     Active Substance: ZIDOVUDINE
     Indication: HIV INFECTION
     Route: 048
     Dates: start: 20180905, end: 20190129
  9. LINEZOLID. [Suspect]
     Active Substance: LINEZOLID
     Indication: TUBERCULOSIS
     Route: 048
     Dates: start: 20180814, end: 20190129
  10. METOCLOPRAMIDE. [Concomitant]
     Active Substance: METOCLOPRAMIDE
     Route: 030
     Dates: start: 20180910, end: 20181001
  11. AEVIT                              /00056001/ [Concomitant]
     Route: 048
     Dates: start: 20180827, end: 20190129
  12. SIRTURO [Suspect]
     Active Substance: BEDAQUILINE FUMARATE
     Indication: TUBERCULOSIS
     Route: 048
     Dates: start: 20180814, end: 20190129
  13. CYANOCOBALAMIN. [Concomitant]
     Active Substance: CYANOCOBALAMIN
     Route: 030
     Dates: start: 20180918, end: 20180924
  14. EFAVIRENZ. [Concomitant]
     Active Substance: EFAVIRENZ
     Indication: HIV INFECTION
     Route: 048
     Dates: start: 20180905, end: 20190129
  15. FAMOTIDINE. [Concomitant]
     Active Substance: FAMOTIDINE
     Route: 048
     Dates: start: 20180814, end: 20190129
  16. COTRIMOXAZOLE [Concomitant]
     Active Substance: SULFAMETHOXAZOLE\TRIMETHOPRIM
     Route: 048
     Dates: start: 20180821, end: 20190129
  17. COBICISTAT W/ELVITEGRAVIR/EMTRICITA/07857201/ [Concomitant]
     Active Substance: COBICISTAT\ELVITEGRAVIR\EMTRICITABINE\TENOFOVIR DISOPROXIL FUMARATE
     Indication: HIV INFECTION
     Route: 048
     Dates: start: 20180905, end: 20190129

REACTIONS (6)
  - Hepatic failure [Unknown]
  - Gastric disorder [Unknown]
  - Death [Fatal]
  - Hepatitis toxic [Not Recovered/Not Resolved]
  - Nephropathy toxic [Unknown]
  - Cataract [Unknown]

NARRATIVE: CASE EVENT DATE: 20181226
